FAERS Safety Report 5495543-6 (Version None)
Quarter: 2007Q4

REPORT INFORMATION
  Report Type: 
  Country: None (occurrence: None)
  Receive Date: 20071015
  Receipt Date: 20070424
  Transmission Date: 20080405
  Serious: Yes (Other)
  Sender: FDA-Public Use
  Company Number: S07-USA-01728-01

PATIENT
  Sex: Female

DRUGS (5)
  1. LEXAPRO [Suspect]
     Indication: DEPRESSION
     Dosage: 40 MG QD PO
     Route: 048
  2. LEXAPRO [Suspect]
     Indication: DEPRESSION
     Dosage: 20 MG QD PO
     Route: 048
  3. CYMBALTA [Suspect]
     Indication: DEPRESSION
     Dosage: 120 MG QD
  4. CYMBALTA [Suspect]
     Indication: DEPRESSION
     Dosage: 60 MG QD
  5. CYMBALTA [Suspect]
     Indication: DEPRESSION
     Dosage: 60 MG QD

REACTIONS (1)
  - SEROTONIN SYNDROME [None]
